FAERS Safety Report 21608946 (Version 1)
Quarter: 2022Q4

REPORT INFORMATION
  Report Type: Spontaneous
  Country: GB (occurrence: GB)
  Receive Date: 20221117
  Receipt Date: 20221117
  Transmission Date: 20230113
  Serious: Yes (Other)
  Sender: FDA-Public Use
  Company Number: GB-ROCHE-3213816

PATIENT
  Sex: Female

DRUGS (10)
  1. BENDAMUSTINE HYDROCHLORIDE [Suspect]
     Active Substance: BENDAMUSTINE HYDROCHLORIDE
     Indication: Diffuse large B-cell lymphoma
     Dosage: UNK (4TH SYSTEMIC TREATMENT)
     Route: 065
     Dates: start: 20220919, end: 20221031
  2. DOXORUBICIN [Suspect]
     Active Substance: DOXORUBICIN
     Indication: Diffuse large B-cell lymphoma
     Dosage: UNK (1ST LINE SYSTEMIC TREATMENT)
     Route: 065
     Dates: start: 20210308, end: 20210621
  3. CARBOPLATIN [Suspect]
     Active Substance: CARBOPLATIN
     Indication: Diffuse large B-cell lymphoma
     Dosage: UNK (2ND LINE SYSTEMIC TREATMENT, THREE CYCLES OF RICE)
     Route: 065
     Dates: start: 20211215, end: 20220129
  4. CYCLOPHOSPHAMIDE [Suspect]
     Active Substance: CYCLOPHOSPHAMIDE
     Indication: Diffuse large B-cell lymphoma
     Dosage: UNK (1ST LINE SYSTEMIC TREATMENT)
     Route: 065
     Dates: start: 20210308, end: 20210621
  5. ETOPOSIDE [Suspect]
     Active Substance: ETOPOSIDE
     Indication: Diffuse large B-cell lymphoma
     Dosage: UNK (2ND LINE SYSTEMIC TREATMENT, THREE CYCLES OF RICE)
     Route: 065
     Dates: start: 20211215, end: 20220129
  6. IFOSFAMIDE [Suspect]
     Active Substance: IFOSFAMIDE
     Indication: Diffuse large B-cell lymphoma
     Dosage: UNK (2ND LINE SYSTEMIC TREATMENT, THREE CYCLES OF RICE)
     Route: 065
     Dates: start: 20211215, end: 20220129
  7. POLATUZUMAB VEDOTIN [Suspect]
     Active Substance: POLATUZUMAB VEDOTIN
     Indication: Diffuse large B-cell lymphoma
     Dosage: UNK (4TH SYSTEMIC TREATMENT)
     Route: 065
     Dates: start: 20220919, end: 20221031
  8. PREDNISONE [Suspect]
     Active Substance: PREDNISONE
     Indication: Diffuse large B-cell lymphoma
     Dosage: UNK (1ST LINE SYSTEMIC TREATMENT)
     Route: 065
     Dates: start: 20210308, end: 20210621
  9. RITUXIMAB [Suspect]
     Active Substance: RITUXIMAB
     Indication: Diffuse large B-cell lymphoma
     Dosage: UNK (1ST LINE SYSTEMIC TREATMENT)
     Route: 065
     Dates: start: 20210308, end: 20210621
  10. VINCRISTINE SULFATE [Suspect]
     Active Substance: VINCRISTINE SULFATE
     Indication: Diffuse large B-cell lymphoma
     Dosage: UNK (1ST LINE SYSTEMIC TREATMENT)
     Route: 065
     Dates: start: 20210308, end: 20210621

REACTIONS (1)
  - Disease progression [Unknown]
